FAERS Safety Report 9526014 (Version 1)
Quarter: 2013Q3

REPORT INFORMATION
  Report Type: Spontaneous
  Country: US (occurrence: US)
  Receive Date: 20130916
  Receipt Date: 20130916
  Transmission Date: 20140515
  Serious: Yes (Other)
  Sender: FDA-Public Use
  Company Number: US-ROXANE LABORATORIES, INC.-2013-RO-01516RO

PATIENT
  Sex: 0

DRUGS (1)
  1. DEXAMETHASONE [Suspect]

REACTIONS (15)
  - Agitation [Unknown]
  - Aggression [Unknown]
  - Renal failure [Unknown]
  - Irritability [Unknown]
  - Depression [Unknown]
  - Hypoaesthesia [Unknown]
  - Ear disorder [Unknown]
  - Dyspnoea [Unknown]
  - Back pain [Unknown]
  - Cough [Unknown]
  - Dysphonia [Unknown]
  - Visual acuity reduced [Unknown]
  - Chills [Unknown]
  - Hyperhidrosis [Unknown]
  - Decreased appetite [Unknown]
